FAERS Safety Report 6130965-1 (Version None)
Quarter: 2009Q1

REPORT INFORMATION
  Report Type: 
  Country: None (occurrence: None)
  Receive Date: 20090325
  Receipt Date: 20090310
  Transmission Date: 20090719
  Serious: Yes (Hospitalization, Other)
  Sender: FDA-Public Use
  Company Number: US-PFIZER INC-2006079165

PATIENT
  Sex: Female
  Weight: 51.247 kg

DRUGS (9)
  1. SILDENAFIL CITRATE [Suspect]
     Indication: PULMONARY ARTERIAL HYPERTENSION
     Route: 048
     Dates: start: 20040407
  2. LANOXIN [Concomitant]
     Route: 048
     Dates: start: 20040902
  3. HYDROCHLOROTHIAZIDE [Concomitant]
     Route: 048
     Dates: start: 20050312
  4. OXYGEN [Concomitant]
     Route: 055
     Dates: start: 20050304
  5. ACETAMINOPHEN [Concomitant]
     Route: 048
     Dates: start: 19950101
  6. LOPERAMIDE HCL [Concomitant]
     Route: 048
     Dates: start: 19980101
  7. PROTONIX [Concomitant]
     Route: 048
     Dates: start: 20060115
  8. FERROUS SULFATE TAB [Concomitant]
     Route: 048
     Dates: start: 20060219
  9. WARFARIN SODIUM [Concomitant]
     Route: 048
     Dates: start: 20051028

REACTIONS (1)
  - LOWER GASTROINTESTINAL HAEMORRHAGE [None]
